FAERS Safety Report 21238843 (Version 1)
Quarter: 2022Q3

REPORT INFORMATION
  Report Type: Spontaneous
  Country: US (occurrence: US)
  Receive Date: 20220822
  Receipt Date: 20220822
  Transmission Date: 20221027
  Serious: No
  Sender: FDA-Public Use
  Company Number: US-PFIZER INC-202201073598

PATIENT
  Age: 80 Year
  Sex: Female
  Weight: 113.4 kg

DRUGS (1)
  1. IBRANCE [Suspect]
     Active Substance: PALBOCICLIB
     Indication: Breast cancer metastatic
     Dosage: 125 MG, CYCLIC (125MG (ONCE A DAY FOR 3 WEEKS AND THEN SHE IS OFF FOR 1 WEEK)
     Route: 048

REACTIONS (2)
  - Epiphyses delayed fusion [Unknown]
  - Osteoporosis [Unknown]
